FAERS Safety Report 22147225 (Version 3)
Quarter: 2023Q2

REPORT INFORMATION
  Report Type: Report from Study
  Country: US (occurrence: US)
  Receive Date: 20230328
  Receipt Date: 20230619
  Transmission Date: 20230722
  Serious: Yes (Hospitalization)
  Sender: FDA-Public Use
  Company Number: US-002147023-NVSC2023US067860

PATIENT
  Age: 71 Year
  Sex: Male

DRUGS (2)
  1. ENTRESTO [Suspect]
     Active Substance: SACUBITRIL\VALSARTAN
     Indication: Cardiac failure
     Dosage: UNK
     Route: 065
     Dates: start: 202206
  2. ENTRESTO [Suspect]
     Active Substance: SACUBITRIL\VALSARTAN
     Dosage: 0.5 DOSAGE FORM, BID (49/51 MG) ONE HALF TABLET
     Route: 048
     Dates: start: 202302

REACTIONS (9)
  - Coronary bypass stenosis [Recovered/Resolved]
  - Memory impairment [Unknown]
  - Dyspnoea exertional [Not Recovered/Not Resolved]
  - Weight fluctuation [Recovering/Resolving]
  - Back pain [Not Recovered/Not Resolved]
  - Dysstasia [Unknown]
  - Product dose omission issue [Not Recovered/Not Resolved]
  - Wrong technique in product usage process [Unknown]
  - Therapeutic product effect incomplete [Unknown]

NARRATIVE: CASE EVENT DATE: 20220601
